FAERS Safety Report 9497738 (Version 1)
Quarter: 2013Q3

REPORT INFORMATION
  Report Type: Spontaneous
  Country: US (occurrence: US)
  Receive Date: 20130904
  Receipt Date: 20130904
  Transmission Date: 20140515
  Serious: No
  Sender: FDA-Public Use
  Company Number: US-AMGEN-USASP2013060929

PATIENT
  Age: 62 Year
  Sex: Female

DRUGS (3)
  1. ENBREL [Suspect]
     Indication: RHEUMATOID ARTHRITIS
     Dosage: 50 MG, QWK
     Route: 065
     Dates: start: 20130715
  2. PLAQUENIL                          /00072602/ [Concomitant]
     Dosage: 2 TABS  QD
     Dates: start: 20130601
  3. METHOTREXATE [Concomitant]
     Dosage: 4 TABS, QWK, STARTED 15 YEARS AGO

REACTIONS (5)
  - Eye pain [Not Recovered/Not Resolved]
  - Headache [Not Recovered/Not Resolved]
  - Injection site pain [Recovered/Resolved]
  - Gastroenteritis viral [Recovered/Resolved]
  - Oral herpes [Not Recovered/Not Resolved]
